FAERS Safety Report 6169215-9 (Version None)
Quarter: 2009Q2

REPORT INFORMATION
  Report Type: 
  Country: None (occurrence: None)
  Receive Date: 20090424
  Receipt Date: 20090414
  Transmission Date: 20091009
  Serious: Yes (Other)
  Sender: FDA-Public Use
  Company Number: 230477K08USA

PATIENT
  Age: 48 Year
  Sex: Female
  Weight: 91 kg

DRUGS (5)
  1. REBIF [Suspect]
     Indication: MULTIPLE SCLEROSIS
     Dosage: 44 MCG, 3 IN 1 WEEKS, SUBCUTANEOUS
     Route: 058
     Dates: start: 20030916
  2. TYLENOL (COTYLENOL) [Concomitant]
  3. INDERAL [Concomitant]
  4. SYNTHROID [Concomitant]
  5. UNSPECIFIED ANTIDEPRESSANT (ANTIDEPRESSANTS) [Concomitant]

REACTIONS (5)
  - CONCUSSION [None]
  - FALL [None]
  - SKIN LACERATION [None]
  - VOMITING [None]
  - WOUND HAEMORRHAGE [None]
